FAERS Safety Report 10166561 (Version 2)
Quarter: 2014Q2

REPORT INFORMATION
  Report Type: Spontaneous
  Country: GB (occurrence: None)
  Receive Date: 20140508
  Receipt Date: 20140523
  Transmission Date: 20141212
  Serious: Yes (Disabling)
  Sender: FDA-Public Use
  Company Number: AUR-APL-2014-05423

PATIENT
  Age: 44 Year
  Sex: Female
  Weight: 99.79 kg

DRUGS (6)
  1. TRAMADOL [Suspect]
     Indication: PRODUCT USED FOR UNKNOWN INDICATION
     Dates: start: 20140306
  2. TIMOLOL MALEATE [Suspect]
     Indication: PRODUCT USED FOR UNKNOWN INDICATION
     Route: 048
     Dates: start: 20140306, end: 20140311
  3. ACETAMINOPHEN / CODEINE (LENOLTEC WITH CODEINE NO 1) (UNKNOWN) (CODEINE, PARACETAMOL) [Concomitant]
  4. AMITRIPTYLINE HYDROCHLORIDE (AMITRIPTYLINE HYDROCHLORIDE) (TABLET) (AMITRIPTYLINE HYDROCHLORIDE) [Concomitant]
  5. CERAZETTE [Concomitant]
  6. NAPROXEN (NAPROXEN) [Concomitant]

REACTIONS (5)
  - Vomiting [None]
  - Blood pressure systolic increased [None]
  - Vertigo [None]
  - Dizziness [None]
  - Burning sensation [None]
